FAERS Safety Report 6088768-2 (Version None)
Quarter: 2009Q1

REPORT INFORMATION
  Report Type: 
  Country: None (occurrence: None)
  Receive Date: 20090224
  Receipt Date: 20090212
  Transmission Date: 20090719
  Serious: Yes (Other)
  Sender: FDA-Public Use
  Company Number: JP-PFIZER INC-2008084422

PATIENT

DRUGS (3)
  1. AZULFIDINE [Suspect]
     Dosage: UNK
     Route: 048
  2. NSAID'S [Concomitant]
  3. CORTICOSTEROIDS [Concomitant]

REACTIONS (4)
  - ASCITES [None]
  - GASTROINTESTINAL EROSION [None]
  - GASTROINTESTINAL OEDEMA [None]
  - SIGMOIDITIS [None]
